FAERS Safety Report 6116044-8 (Version None)
Quarter: 2009Q1

REPORT INFORMATION
  Report Type: 
  Country: None (occurrence: None)
  Receive Date: 20090314
  Receipt Date: 20081211
  Transmission Date: 20090719
  Serious: No
  Sender: FDA-Public Use
  Company Number: US-ABBOTT-08P-163-0492507-00

PATIENT
  Sex: Female
  Weight: 96.248 kg

DRUGS (6)
  1. HUMIRA [Suspect]
     Indication: PSORIASIS
     Route: 058
     Dates: start: 20081103
  2. PRINZIDE [Concomitant]
     Indication: HYPERTENSION
     Dosage: 20/25
     Route: 048
  3. EFFEXOR XR [Concomitant]
     Indication: HOT FLUSH
  4. EFFEXOR XR [Concomitant]
     Indication: HORMONE THERAPY
  5. ACTOS [Concomitant]
     Indication: DIABETES MELLITUS
  6. OXYBUTYNIN CHLORIDE [Concomitant]
     Indication: URINARY INCONTINENCE
     Route: 048

REACTIONS (2)
  - INCORRECT DOSE ADMINISTERED [None]
  - INJECTION SITE IRRITATION [None]
